FAERS Safety Report 25902473 (Version 2)
Quarter: 2025Q4

REPORT INFORMATION
  Report Type: Report from Study
  Country: US (occurrence: US)
  Receive Date: 20251009
  Receipt Date: 20251014
  Transmission Date: 20260118
  Serious: Yes (Other)
  Sender: NOVARTIS
  Company Number: US-002147023-NVSC2025US156574

PATIENT
  Sex: Male

DRUGS (1)
  1. LEQVIO [Suspect]
     Active Substance: INCLISIRAN SODIUM
     Indication: Pain in extremity
     Dosage: UNK
     Route: 065
     Dates: start: 20250710

REACTIONS (6)
  - Arthralgia [Not Recovered/Not Resolved]
  - Gait disturbance [Unknown]
  - Joint swelling [Unknown]
  - Joint effusion [Unknown]
  - Peripheral swelling [Unknown]
  - Product use in unapproved indication [Unknown]
